FAERS Safety Report 5210068-0 (Version None)
Quarter: 2006Q4

REPORT INFORMATION
  Report Type: 
  Country: None (occurrence: None)
  Receive Date: 20061103
  Receipt Date: 20060803
  Transmission Date: 20070319
  Serious: Yes (Other)
  Sender: FDA-Public Use
  Company Number: 458957

PATIENT
  Sex: Female

DRUGS (1)
  1. BONIVA [Suspect]
     Indication: DRUG USE FOR UNKNOWN INDICATION
     Dosage: 3 MG OTHER
     Route: 050
     Dates: start: 20060601

REACTIONS (7)
  - BACK PAIN [None]
  - COUGH [None]
  - GASTRIC DISORDER [None]
  - INCREASED UPPER AIRWAY SECRETION [None]
  - INFLUENZA LIKE ILLNESS [None]
  - NASOPHARYNGEAL DISORDER [None]
  - PYREXIA [None]
